FAERS Safety Report 7536294-3 (Version None)
Quarter: 2011Q2

REPORT INFORMATION
  Report Type: 
  Country: None (occurrence: None)
  Receive Date: 20110608
  Receipt Date: 20110608
  Transmission Date: 20111010
  Serious: No
  Sender: FDA-Public Use
  Company Number: None

PATIENT
  Age: 32 Year
  Sex: Female
  Weight: 133.3575 kg

DRUGS (1)
  1. ORENCIA [Suspect]
     Dosage: 1000 MONTHLY IV
     Route: 042
     Dates: start: 20110322, end: 20110411

REACTIONS (2)
  - PERIPHERAL SENSORY NEUROPATHY [None]
  - PERIPHERAL MOTOR NEUROPATHY [None]
